FAERS Safety Report 15714671 (Version 1)
Quarter: 2018Q4

REPORT INFORMATION
  Report Type: Spontaneous
  Country: US (occurrence: US)
  Receive Date: 20181212
  Receipt Date: 20181212
  Transmission Date: 20190205
  Serious: Yes (Life-Threatening, Other)
  Sender: FDA-Public Use
  Company Number: None

PATIENT
  Age: 31 Year
  Sex: Female
  Weight: 63 kg

DRUGS (9)
  1. AMITRIPTYLINE [Concomitant]
     Active Substance: AMITRIPTYLINE
  2. HYDROXYZINE [Concomitant]
     Active Substance: HYDROXYZINE HYDROCHLORIDE
  3. XOPENEX HFA [Concomitant]
     Active Substance: LEVALBUTEROL TARTRATE
  4. TIZANIDINE. [Concomitant]
     Active Substance: TIZANIDINE
  5. VAGINAL VALIUM [Concomitant]
  6. TRAMADOL. [Concomitant]
     Active Substance: TRAMADOL
  7. AIMOVIG [Suspect]
     Active Substance: ERENUMAB-AOOE
     Indication: MIGRAINE
     Dosage: ?          QUANTITY:1 INJECTION(S);OTHER FREQUENCY:1/MONTH;?
     Route: 058
     Dates: start: 20181110, end: 20181211
  8. LEXAPRO [Concomitant]
     Active Substance: ESCITALOPRAM OXALATE
  9. NEBULIZER WITH XOPENEX [Concomitant]

REACTIONS (17)
  - Unresponsive to stimuli [None]
  - Facial paresis [None]
  - Dysarthria [None]
  - Impaired self-care [None]
  - Hypoaesthesia [None]
  - Oxygen saturation decreased [None]
  - Mental impairment [None]
  - Muscular weakness [None]
  - Poverty of thought content [None]
  - Amnesia [None]
  - Fine motor skill dysfunction [None]
  - Visual impairment [None]
  - Paraesthesia [None]
  - Cough [None]
  - Heart rate increased [None]
  - Delusion [None]
  - Gait disturbance [None]

NARRATIVE: CASE EVENT DATE: 20181211
